FAERS Safety Report 4354853-6 (Version None)
Quarter: 2004Q2

REPORT INFORMATION
  Report Type: 
  Country: None (occurrence: None)
  Receive Date: 20040507
  Receipt Date: 20040426
  Transmission Date: 20050107
  Serious: Yes (Hospitalization)
  Sender: FDA-Public Use
  Company Number: PT-GLAXOSMITHKLINE-B0331723A

PATIENT
  Age: 80 Year
  Sex: Male

DRUGS (2)
  1. DUTASTERIDE [Suspect]
     Route: 048
  2. FINASTERIDE [Concomitant]

REACTIONS (1)
  - URINARY RETENTION [None]
